FAERS Safety Report 4775214-1 (Version None)
Quarter: 2005Q3

REPORT INFORMATION
  Report Type: 
  Country: None (occurrence: None)
  Receive Date: 20050921
  Receipt Date: 20050601
  Transmission Date: 20060218
  Serious: Yes (Hospitalization)
  Sender: FDA-Public Use
  Company Number: US-MERCK-0506USA00734

PATIENT
  Age: 54 Year
  Sex: Male
  Weight: 95 kg

DRUGS (11)
  1. VIOXX [Suspect]
     Indication: ARTHRITIS
     Route: 048
     Dates: start: 20000525
  2. VIOXX [Suspect]
     Route: 048
     Dates: start: 20030822, end: 20031006
  3. VIOXX [Suspect]
     Indication: PAIN
     Route: 048
     Dates: start: 20000401, end: 20000524
  4. VIOXX [Suspect]
     Route: 048
     Dates: start: 20000525
  5. VIOXX [Suspect]
     Route: 048
     Dates: start: 20030822, end: 20031006
  6. VIOXX [Suspect]
     Route: 048
     Dates: start: 20031007, end: 20031015
  7. VIOXX [Suspect]
     Route: 048
     Dates: start: 20000401, end: 20000524
  8. VIOXX [Suspect]
     Route: 048
     Dates: start: 20031007, end: 20031015
  9. METOPROLOL [Concomitant]
     Indication: HYPERTENSION
     Route: 065
     Dates: start: 20010924, end: 20031030
  10. PREDNISONE [Concomitant]
     Indication: ARTHRALGIA
     Route: 065
     Dates: start: 20000519
  11. PREDNISONE [Concomitant]
     Indication: SHOULDER PAIN
     Route: 065
     Dates: start: 20000519

REACTIONS (26)
  - ACTIVATED PARTIAL THROMBOPLASTIN TIME PROLONGED [None]
  - ACUTE MYOCARDIAL INFARCTION [None]
  - ARRHYTHMIA [None]
  - ARTHROPATHY [None]
  - ATRIAL FIBRILLATION [None]
  - BLOOD CHOLESTEROL INCREASED [None]
  - BRONCHITIS [None]
  - BUNDLE BRANCH BLOCK LEFT [None]
  - CARDIAC FAILURE CONGESTIVE [None]
  - CHEST PAIN [None]
  - CORONARY ARTERY ATHEROSCLEROSIS [None]
  - CORONARY ARTERY OCCLUSION [None]
  - CORONARY ARTERY STENOSIS [None]
  - ELECTROCARDIOGRAM ST SEGMENT ELEVATION [None]
  - HERPES VIRUS INFECTION [None]
  - HYPERTENSION [None]
  - INFECTION [None]
  - INTERVERTEBRAL DISC PROTRUSION [None]
  - NAUSEA [None]
  - NON-CARDIAC CHEST PAIN [None]
  - PHARYNGITIS [None]
  - PLEURAL EFFUSION [None]
  - SCIATICA [None]
  - SINUS TACHYCARDIA [None]
  - SINUSITIS [None]
  - UPPER RESPIRATORY TRACT INFECTION [None]
